FAERS Safety Report 17668276 (Version 1)
Quarter: 2020Q2

REPORT INFORMATION
  Report Type: Spontaneous
  Country: IT (occurrence: IT)
  Receive Date: 20200414
  Receipt Date: 20200414
  Transmission Date: 20200713
  Serious: Yes (Other)
  Sender: FDA-Public Use
  Company Number: IT-AUROBINDO-AUR-APL-2020-017801

PATIENT
  Age: 12 Year
  Sex: Female
  Weight: 31 kg

DRUGS (2)
  1. OLANZAPINE. [Suspect]
     Active Substance: OLANZAPINE
     Indication: ANOREXIA NERVOSA
     Dosage: 2.5 MILLIGRAM, ONCE A DAY
     Route: 048
     Dates: start: 20191201, end: 20200224
  2. SERTRALINE [Suspect]
     Active Substance: SERTRALINE HYDROCHLORIDE
     Indication: ANOREXIA NERVOSA
     Dosage: 2.5 MILLIGRAM, ONCE A DAY
     Route: 048
     Dates: start: 20191201

REACTIONS (1)
  - Electrocardiogram QT prolonged [Recovered/Resolved]

NARRATIVE: CASE EVENT DATE: 20200224
